FAERS Safety Report 17837536 (Version 2)
Quarter: 2020Q4

REPORT INFORMATION
  Report Type: Report from Study
  Country: DE (occurrence: DE)
  Receive Date: 20200528
  Receipt Date: 20201120
  Transmission Date: 20210113
  Serious: Yes (Death, Life-Threatening, Hospitalization)
  Sender: FDA-Public Use
  Company Number: DE-IMMUNOMEDICS, INC.-2020IMMU000347

PATIENT
  Age: 64 Year
  Sex: Female
  Weight: 67.5 kg

DRUGS (19)
  1. IDEOS [Concomitant]
     Active Substance: CALCIUM CARBONATE\CHOLECALCIFEROL
     Indication: OSTEOPOROSIS PROPHYLAXIS
     Dosage: KT, 1X DAILY, TGL
     Route: 065
     Dates: start: 2014
  2. L-THYROXIN [Concomitant]
     Active Substance: LEVOTHYROXINE SODIUM
     Indication: HYPOTHYROIDISM
     Dosage: 75 UG, QD
     Route: 065
     Dates: start: 201912
  3. FOSFOMYCIN [Concomitant]
     Active Substance: FOSFOMYCIN
     Indication: URINARY TRACT INFECTION
     Dosage: UNK
     Route: 065
     Dates: start: 20200309, end: 20200312
  4. IMODIUM [Concomitant]
     Active Substance: LOPERAMIDE HYDROCHLORIDE
     Indication: DIARRHOEA
     Dosage: UNK
     Route: 065
     Dates: start: 201912, end: 20200313
  5. SPIRONOLACTON [Concomitant]
     Active Substance: SPIRONOLACTONE
     Indication: ASCITES
     Dosage: 50 MG, QD
     Route: 065
     Dates: start: 20200313, end: 20200326
  6. DENOSUMAB [Concomitant]
     Active Substance: DENOSUMAB
     Indication: OSTEOPOROSIS PROPHYLAXIS
     Dosage: 120 MG, Q4W
     Route: 065
     Dates: start: 2014
  7. SACITUZUMAB GOVITECAN. [Suspect]
     Active Substance: SACITUZUMAB GOVITECAN
     Indication: BREAST CANCER METASTATIC
     Dosage: 10 MG/KG (700 MG) DAYS 1 AND 8 OF 21-DAYS CYCLE
     Route: 042
     Dates: start: 20200326, end: 20200326
  8. SACITUZUMAB GOVITECAN. [Suspect]
     Active Substance: SACITUZUMAB GOVITECAN
     Dosage: 10 MG/KG (700 MG) DAYS 1 AND 8 OF 21-DAYS CYCLE
     Route: 042
     Dates: start: 20200402, end: 20200402
  9. TORASEMID [Concomitant]
     Active Substance: TORSEMIDE
     Indication: ASCITES
     Dosage: 10 MG, QD, EVERY MORNING
     Route: 048
     Dates: start: 20200313, end: 20200408
  10. TILIDIN [Concomitant]
     Active Substance: NALOXONE HYDROCHLORIDE\TILIDINE HYDROCHLORIDE
     Indication: PAIN
     Dosage: 100 MG
     Route: 065
     Dates: end: 20200402
  11. SIMETICON [Concomitant]
     Indication: PRODUCT USED FOR UNKNOWN INDICATION
     Dosage: UNK
     Route: 065
     Dates: end: 20200402
  12. MAGNESIUM [Concomitant]
     Active Substance: MAGNESIUM
     Indication: SUPPLEMENTATION THERAPY
     Dosage: UNK UNK, PRN
     Route: 065
     Dates: start: 2015
  13. MOVICOL [Concomitant]
     Active Substance: POLYETHYLENE GLYCOL 3350\POTASSIUM CHLORIDE\SODIUM BICARBONATE\SODIUM CHLORIDE
     Indication: PRODUCT USED FOR UNKNOWN INDICATION
     Dosage: UNK UNK, PRN
     Route: 065
     Dates: end: 20200402
  14. OLANZAPIN [Concomitant]
     Active Substance: OLANZAPINE
     Indication: PRODUCT USED FOR UNKNOWN INDICATION
     Dosage: 5 MG
     Route: 065
     Dates: end: 20200402
  15. TORASEMID [Concomitant]
     Active Substance: TORSEMIDE
     Indication: DIURETIC THERAPY
     Dosage: 20 MG, 1-1/2-0
     Route: 048
     Dates: start: 20200408
  16. AMOXICLAV [Concomitant]
     Active Substance: AMOXICILLIN\CLAVULANATE POTASSIUM
     Indication: URINARY TRACT INFECTION
     Dosage: 875MG+125MG
     Route: 065
     Dates: start: 20200312, end: 20200317
  17. KALINOR [Concomitant]
     Indication: SUPPLEMENTATION THERAPY
     Dosage: UNK
     Route: 065
     Dates: start: 20200326
  18. TILIDIN [Concomitant]
     Active Substance: NALOXONE HYDROCHLORIDE\TILIDINE HYDROCHLORIDE
     Indication: ASCITES
  19. ONDANSETRON [Concomitant]
     Active Substance: ONDANSETRON
     Indication: PRODUCT USED FOR UNKNOWN INDICATION
     Dosage: 4 MG, PRN
     Route: 065
     Dates: start: 20200326

REACTIONS (2)
  - Urinary tract infection [Recovered/Resolved]
  - Embolism [Recovering/Resolving]

NARRATIVE: CASE EVENT DATE: 20200408
